FAERS Safety Report 23898714 (Version 5)
Quarter: 2024Q2

REPORT INFORMATION
  Report Type: Spontaneous
  Country: CA (occurrence: CA)
  Receive Date: 20240525
  Receipt Date: 20240629
  Transmission Date: 20240716
  Serious: Yes (Hospitalization, Other)
  Sender: FDA-Public Use
  Company Number: CA-PFIZER INC-PV202400059456

PATIENT

DRUGS (6)
  1. INFLECTRA [Suspect]
     Active Substance: INFLIXIMAB-DYYB
     Indication: Colitis ulcerative
     Dosage: 800 MG, INDUCTION WEEK 0, 2,6 THEN EVERY 8 WEEKS
     Route: 042
     Dates: start: 20240505
  2. INFLECTRA [Suspect]
     Active Substance: INFLIXIMAB-DYYB
     Dosage: 800 MG, INDUCTION WEEK 0, 2,6 THEN EVERY 8 WEEKS
     Route: 042
     Dates: start: 20240515
  3. INFLECTRA [Suspect]
     Active Substance: INFLIXIMAB-DYYB
     Dosage: 400 MG, INDUCTION WEEK 0, 2,6 THEN EVERY 8 WEEKS
     Route: 042
     Dates: start: 20240618
  4. INFLECTRA [Suspect]
     Active Substance: INFLIXIMAB-DYYB
     Dosage: 400 MG, INDUCTION WEEK 0, 2,6 THEN EVERY 8 WEEKS
     Route: 042
     Dates: start: 20240618
  5. PREDNISONE [Concomitant]
     Active Substance: PREDNISONE
     Dosage: UNK
     Route: 048
  6. MESALAMINE [Concomitant]
     Active Substance: MESALAMINE
     Dosage: UNK
     Route: 048

REACTIONS (4)
  - Nervous system disorder [Unknown]
  - Cerebrovascular accident [Unknown]
  - Haematochezia [Unknown]
  - Off label use [Unknown]

NARRATIVE: CASE EVENT DATE: 20240101
